FAERS Safety Report 18050663 (Version 1)
Quarter: 2020Q3

REPORT INFORMATION
  Report Type: Report from Study
  Country: US (occurrence: US)
  Receive Date: 20200721
  Receipt Date: 20200721
  Transmission Date: 20201103
  Serious: Yes (Hospitalization)
  Sender: FDA-Public Use
  Company Number: US-GLAXOSMITHKLINE-US2020GSK137449

PATIENT
  Age: 55 Year
  Sex: Female

DRUGS (3)
  1. LAMOTRIGINE. [Suspect]
     Active Substance: LAMOTRIGINE
     Dosage: 350 MG
  2. LAMOTRIGINE. [Suspect]
     Active Substance: LAMOTRIGINE
     Indication: PARTIAL SEIZURES
     Dosage: 300 MG
  3. LAMOTRIGINE. [Suspect]
     Active Substance: LAMOTRIGINE
     Dosage: 400 MG

REACTIONS (6)
  - Confusional state [Recovered/Resolved]
  - Mental status changes [Unknown]
  - Dizziness [Unknown]
  - Toxicity to various agents [Recovered/Resolved]
  - Ataxia [Unknown]
  - Anticonvulsant drug level above therapeutic [Recovered/Resolved]
